FAERS Safety Report 21067005 (Version 1)
Quarter: 2022Q3

REPORT INFORMATION
  Report Type: Spontaneous
  Country: SI (occurrence: SI)
  Receive Date: 20220712
  Receipt Date: 20220712
  Transmission Date: 20221027
  Serious: Yes (Other)
  Sender: FDA-Public Use
  Company Number: SI-BAYER-2022A093375

PATIENT
  Age: 72 Year
  Sex: Female

DRUGS (14)
  1. XARELTO [Suspect]
     Active Substance: RIVAROXABAN
     Indication: Product used for unknown indication
     Route: 048
  2. SACUBITRIL\VALSARTAN [Concomitant]
     Active Substance: SACUBITRIL\VALSARTAN
  3. BISOPROLOL [Concomitant]
     Active Substance: BISOPROLOL
  4. SPIRONOLACTONE [Concomitant]
     Active Substance: SPIRONOLACTONE
  5. EMPAGLIFLOZIN [Concomitant]
     Active Substance: EMPAGLIFLOZIN
  6. AMIODARONE [Concomitant]
     Active Substance: AMIODARONE
  7. Verquvo 2.5mg [Concomitant]
  8. PERINDOPRIL [Concomitant]
     Active Substance: PERINDOPRIL
  9. AMLODIPINE [Concomitant]
     Active Substance: AMLODIPINE BESYLATE
  10. ATORVASTATIN [Concomitant]
     Active Substance: ATORVASTATIN
  11. LEVOTHYROXINE [Concomitant]
     Active Substance: LEVOTHYROXINE
  12. INDAPAMIDE [Concomitant]
     Active Substance: INDAPAMIDE
  13. METFORMIN [Concomitant]
     Active Substance: METFORMIN HYDROCHLORIDE
  14. DULAGLUTIDE [Concomitant]
     Active Substance: DULAGLUTIDE

REACTIONS (1)
  - Asphyxia [Unknown]
